FAERS Safety Report 21182975 (Version 1)
Quarter: 2022Q3

REPORT INFORMATION
  Report Type: Report from Study
  Country: DE (occurrence: DE)
  Receive Date: 20220808
  Receipt Date: 20220808
  Transmission Date: 20221027
  Serious: Yes (Other)
  Sender: FDA-Public Use
  Company Number: DE-NOVARTISPH-NVSC2022DE177992

PATIENT
  Sex: Female

DRUGS (2)
  1. COSENTYX [Suspect]
     Active Substance: SECUKINUMAB
     Indication: Axial spondyloarthritis
     Dosage: 300 MG, QMO
     Route: 065
     Dates: start: 20180712
  2. IBUPROFEN [Suspect]
     Active Substance: IBUPROFEN
     Indication: Axial spondyloarthritis
     Dosage: 800 MG (7 DAYS PER WEEK)
     Route: 065
     Dates: start: 20191205

REACTIONS (1)
  - Breast cancer [Unknown]

NARRATIVE: CASE EVENT DATE: 20220331
